FAERS Safety Report 13028953 (Version 1)
Quarter: 2016Q4

REPORT INFORMATION
  Report Type: Spontaneous
  Country: US (occurrence: US)
  Receive Date: 20161214
  Receipt Date: 20161214
  Transmission Date: 20170207
  Serious: Yes (Death, Hospitalization, Other)
  Sender: FDA-Public Use
  Company Number: US-TEVA-720450USA

PATIENT
  Age: 44 Year
  Sex: Male

DRUGS (8)
  1. LINEZOLID. [Suspect]
     Active Substance: LINEZOLID
     Route: 065
     Dates: start: 20160202
  2. CLOFAZIMINE [Suspect]
     Active Substance: CLOFAZIMINE
     Route: 065
     Dates: start: 20160202
  3. IPRATROPIUM [Concomitant]
     Active Substance: IPRATROPIUM
     Indication: CHRONIC OBSTRUCTIVE PULMONARY DISEASE
     Dosage: 2 PUFFS TDS
  4. TDF/3TC/EFU [Concomitant]
     Indication: HIV INFECTION
     Dosage: 300/300/600
     Dates: start: 2010
  5. ETHAMBUTOL [Suspect]
     Active Substance: ETHAMBUTOL HYDROCHLORIDE
     Route: 065
     Dates: start: 20160202
  6. BEDAQUILLNE [Suspect]
     Active Substance: BEDAQUILINE
     Route: 065
     Dates: start: 20160202, end: 20161031
  7. PYRAZINAMIDE. [Suspect]
     Active Substance: PYRAZINAMIDE
     Route: 065
  8. SALBUTAMOL [Concomitant]
     Active Substance: ALBUTEROL
     Indication: CHRONIC OBSTRUCTIVE PULMONARY DISEASE
     Dosage: 2 PUFFS TDS

REACTIONS (6)
  - Respiratory distress [Fatal]
  - Respiratory failure [Recovered/Resolved]
  - Bronchospasm [Recovered/Resolved]
  - Chronic obstructive pulmonary disease [Recovered/Resolved]
  - Cor pulmonale [Recovering/Resolving]
  - Chronic obstructive pulmonary disease [None]

NARRATIVE: CASE EVENT DATE: 201608
